FAERS Safety Report 5138377-4 (Version None)
Quarter: 2006Q4

REPORT INFORMATION
  Report Type: 
  Country: None (occurrence: None)
  Receive Date: 20061024
  Receipt Date: 20061010
  Transmission Date: 20070319
  Serious: Yes (Death)
  Sender: FDA-Public Use
  Company Number: 163-20785-06090252

PATIENT
  Age: 77 Year

DRUGS (1)
  1. THALOMID [Suspect]
     Indication: PAIN
     Dosage: 50 MG, QHS, ORAL
     Route: 048
     Dates: start: 20050920, end: 20060906

REACTIONS (3)
  - COAGULOPATHY [None]
  - DISEASE PROGRESSION [None]
  - PULMONARY EMBOLISM [None]
